FAERS Safety Report 9468875 (Version 1)
Quarter: 2013Q3

REPORT INFORMATION
  Report Type: Spontaneous
  Country: GB (occurrence: GB)
  Receive Date: 20130821
  Receipt Date: 20130821
  Transmission Date: 20140515
  Serious: Yes (Hospitalization, Other)
  Sender: FDA-Public Use
  Company Number: GB-B.I. PHARMACEUTICALS,INC./RIDGEFIELD-2013-UK-01714UK

PATIENT
  Age: 79 Year
  Sex: Female
  Weight: 64.2 kg

DRUGS (14)
  1. PRADAXA [Suspect]
     Indication: ATRIAL FIBRILLATION
     Dosage: 220 MG
     Route: 048
     Dates: start: 20130704, end: 20130729
  2. ACARBOSE [Concomitant]
     Dosage: 100 MG
     Route: 048
  3. ASPIRIN [Concomitant]
     Dosage: 75 MG
     Route: 048
  4. BISOPROLOL [Concomitant]
     Dosage: 10 MG
     Route: 048
  5. BUMETANIDE [Concomitant]
     Dosage: 4 MG
     Route: 048
  6. CARBOCISTEINE [Concomitant]
     Dosage: 2250 MG
     Route: 048
  7. DIGOXIN [Concomitant]
     Dosage: 125 MCG
     Route: 048
  8. GLICLAZIDE [Concomitant]
     Dosage: 160 MG
     Route: 048
  9. LEVOTHYROXINE [Concomitant]
     Dosage: 175 MCG
     Route: 048
  10. METFORMIN [Concomitant]
     Dosage: 1000 MG
     Route: 048
  11. NICORANDIL [Concomitant]
     Dosage: 20 MG
     Route: 048
  12. RAMIPRIL [Concomitant]
     Dosage: 10 MG
     Route: 048
  13. SIMVASTATIN [Concomitant]
     Dosage: 40 MG
     Route: 048
  14. SPIRONOLACTONE [Concomitant]
     Dosage: 25 MG
     Route: 048

REACTIONS (4)
  - Haematemesis [Not Recovered/Not Resolved]
  - Haemoglobin decreased [Unknown]
  - International normalised ratio increased [Unknown]
  - Melaena [Not Recovered/Not Resolved]
